FAERS Safety Report 5032514-8 (Version None)
Quarter: 2006Q2

REPORT INFORMATION
  Report Type: 
  Country: None (occurrence: None)
  Receive Date: 20060622
  Receipt Date: 20060612
  Transmission Date: 20061013
  Serious: Yes (Hospitalization, Other)
  Sender: FDA-Public Use
  Company Number: US-AMGEN-KDL181860

PATIENT
  Sex: Female
  Weight: 89.4 kg

DRUGS (16)
  1. ARANESP [Suspect]
     Indication: ANAEMIA OF MALIGNANT DISEASE
     Route: 058
     Dates: start: 20020820, end: 20051230
  2. PROCRIT [Suspect]
     Route: 058
     Dates: start: 20020626
  3. METHOTREXATE [Concomitant]
  4. EXJADE [Concomitant]
  5. PREDNISONE [Concomitant]
     Dates: start: 20031201
  6. CYTOXAN [Concomitant]
     Dates: start: 20040101
  7. BENAZEPRIL HYDROCHLORIDE [Concomitant]
  8. SIMVASTATIN [Concomitant]
  9. DIGOXIN [Concomitant]
  10. SERTRALINE [Concomitant]
  11. MECLIZINE [Concomitant]
  12. METFORMIN HCL [Concomitant]
  13. NOVOLIN R [Concomitant]
  14. NOVOLIN N [Concomitant]
  15. AGGRENOX [Concomitant]
  16. RIVASTIGIMINE [Concomitant]

REACTIONS (5)
  - APLASIA PURE RED CELL [None]
  - ASTHENIA [None]
  - HAEMOGLOBIN DECREASED [None]
  - LARGE GRANULAR LYMPHOCYTOSIS [None]
  - PYREXIA [None]
